FAERS Safety Report 6091146-3 (Version None)
Quarter: 2009Q1

REPORT INFORMATION
  Report Type: 
  Country: None (occurrence: None)
  Receive Date: 20090225
  Receipt Date: 20090213
  Transmission Date: 20090719
  Serious: Yes (Hospitalization)
  Sender: FDA-Public Use
  Company Number: CA-PFIZER INC-2009171693

PATIENT

DRUGS (2)
  1. ZIPRASIDONE HCL [Suspect]
     Dosage: 40 MG TWO BID
     Dates: start: 20090120, end: 20090213
  2. LAMICTAL ^BURROUGHS WELLCOME^ [Concomitant]
     Dosage: UNK
     Route: 048
     Dates: start: 20060313, end: 20090210

REACTIONS (1)
  - SCHIZOPHRENIA [None]
